FAERS Safety Report 5080812-4 (Version None)
Quarter: 2006Q3

REPORT INFORMATION
  Report Type: 
  Country: None (occurrence: None)
  Receive Date: 20060809
  Receipt Date: 20060724
  Transmission Date: 20061208
  Serious: Yes (Other)
  Sender: FDA-Public Use
  Company Number: 2006AL001940

PATIENT
  Age: 71 Year
  Sex: Male

DRUGS (8)
  1. DICLONFENAC [Suspect]
     Indication: ARTHRITIS
     Dosage: 50 MG; TID; PO
     Route: 048
     Dates: start: 20060210, end: 20060210
  2. NIFEDIPINE [Suspect]
     Dosage: 10 MG, BID; PO
     Route: 048
  3. ASPIRIN [Concomitant]
  4. CAPTOPRIL [Concomitant]
  5. GLYCERYL TRINITRATE [Concomitant]
  6. QUININE SULFATE [Concomitant]
  7. ALBUTEROL SPIROS [Concomitant]
  8. LANSOPRAZOLE [Concomitant]

REACTIONS (2)
  - BRONCHOSPASM [None]
  - URTICARIA [None]
